FAERS Safety Report 7276298-1 (Version None)
Quarter: 2011Q1

REPORT INFORMATION
  Report Type: 
  Country: None (occurrence: None)
  Receive Date: 20110131
  Receipt Date: 20110117
  Transmission Date: 20110831
  Serious: Yes (Hospitalization)
  Sender: FDA-Public Use
  Company Number: 2010CP000279

PATIENT
  Age: 54 Year
  Sex: Female

DRUGS (12)
  1. PERFALGAN (PARACETAMOL) [Suspect]
     Dosage: 1 DOSAGE FORM;1/1 DAY;IV
     Route: 042
     Dates: start: 20100602, end: 20100612
  2. ACUPAN [Suspect]
     Dosage: IV
     Route: 042
     Dates: start: 20100602, end: 20100603
  3. PHLOROGLUCINOL (PHLOROGLUCINOL) [Suspect]
     Dosage: IV
     Route: 042
     Dates: start: 20100603, end: 20100618
  4. TRAMADOL HCL [Suspect]
     Dosage: IV
     Route: 042
     Dates: start: 20100603, end: 20100611
  5. CEFTRIAXONE SODIUM [Suspect]
     Dates: start: 20100605, end: 20100616
  6. KETOPROFEN [Suspect]
     Dosage: IV
     Route: 042
     Dates: start: 20100602, end: 20100603
  7. ENOXAPARIN SODIUM [Suspect]
     Dates: start: 20100603, end: 20100620
  8. ACETAMINOPHEN [Suspect]
     Dosage: PO
     Route: 048
     Dates: start: 20100612, end: 20100621
  9. ESOMEPRAZOLE (ESOMEPRAZOLE) [Suspect]
     Dosage: PO
     Route: 048
     Dates: start: 20100606, end: 20100623
  10. ALPRAZOLAM [Suspect]
     Dosage: .5 MG;1/1 DAY;PO
     Route: 048
     Dates: start: 20100612, end: 20100613
  11. METRONIDAZOLE [Suspect]
     Dosage: .5%;IV
     Route: 042
     Dates: start: 20100605, end: 20100616
  12. INIPOMP (PANTOPRAZOLE SODIUM) [Suspect]
     Dosage: 40 MG;IV
     Route: 042
     Dates: start: 20100602, end: 20100606

REACTIONS (1)
  - TOXIC EPIDERMAL NECROLYSIS [None]
